FAERS Safety Report 10861720 (Version 1)
Quarter: 2015Q1

REPORT INFORMATION
  Report Type: Spontaneous
  Country: US (occurrence: US)
  Receive Date: 20150224
  Receipt Date: 20150224
  Transmission Date: 20150721
  Serious: No
  Sender: FDA-Public Use
  Company Number: US-PFIZER INC-2015065436

PATIENT

DRUGS (3)
  1. LYRICA [Suspect]
     Active Substance: PREGABALIN
     Dosage: ONE 50 MG CAPSULE
  2. LYRICA [Suspect]
     Active Substance: PREGABALIN
     Dosage: ONE 50 MG CAPSULE
  3. LYRICA [Suspect]
     Active Substance: PREGABALIN
     Dosage: TWO 50 MG CAPSULES

REACTIONS (3)
  - Back pain [Unknown]
  - Muscle spasms [Unknown]
  - Pain in extremity [Unknown]
